FAERS Safety Report 5511886-1 (Version None)
Quarter: 2007Q4

REPORT INFORMATION
  Report Type: 
  Country: None (occurrence: None)
  Receive Date: 20071109
  Receipt Date: 20071029
  Transmission Date: 20080405
  Serious: Yes (Other)
  Sender: FDA-Public Use
  Company Number: DE-PFIZER INC-2007091404

PATIENT
  Sex: Female
  Weight: 50 kg

DRUGS (3)
  1. SUTENT [Suspect]
     Indication: METASTATIC RENAL CELL CARCINOMA
     Route: 048
     Dates: start: 20070501, end: 20071016
  2. ALL OTHER THERAPEUTIC PRODUCTS [Concomitant]
  3. BIPHOSPHONATE [Concomitant]

REACTIONS (6)
  - ANXIETY [None]
  - EPISTAXIS [None]
  - HEADACHE [None]
  - NERVOUS SYSTEM DISORDER [None]
  - PRODUCTIVE COUGH [None]
  - RESTLESSNESS [None]
